FAERS Safety Report 4318089-7 (Version None)
Quarter: 2004Q1

REPORT INFORMATION
  Report Type: 
  Country: None (occurrence: None)
  Receive Date: 20040317
  Receipt Date: 20040226
  Transmission Date: 20041129
  Serious: Yes (Hospitalization)
  Sender: FDA-Public Use
  Company Number: WAES 0403USA00051

PATIENT
  Age: 75 Year
  Sex: Male
  Weight: 60 kg

DRUGS (7)
  1. ALLOPURINOL [Concomitant]
  2. BENZBROMARONE [Concomitant]
     Indication: HYPERURICAEMIA
     Dates: start: 19990317
  3. DICLOFENAC SODIUM [Concomitant]
     Indication: BACK PAIN
     Dates: start: 19950101
  4. DIPYRIDAMOLE [Concomitant]
     Indication: PROTEINURIA
     Dates: start: 19990421, end: 20040130
  5. FAMOTIDINE [Concomitant]
     Indication: GASTRIC ULCER
     Route: 048
     Dates: start: 19940506, end: 20040130
  6. IFENPRODIL TARTRATE [Concomitant]
     Indication: CEREBRAL INFARCTION
     Dates: start: 19990421
  7. COZAAR [Suspect]
     Indication: HYPERTENSION
     Route: 048
     Dates: start: 20020417, end: 20040130

REACTIONS (5)
  - ANAEMIA [None]
  - HAEMATURIA [None]
  - MEDICATION ERROR [None]
  - RENAL IMPAIRMENT [None]
  - RHABDOMYOLYSIS [None]
